FAERS Safety Report 9182179 (Version 1)
Quarter: 2013Q1

REPORT INFORMATION
  Report Type: Spontaneous
  Country: US (occurrence: None)
  Receive Date: 20130321
  Receipt Date: 20130321
  Transmission Date: 20140127
  Serious: Yes (Hospitalization)
  Sender: FDA-Public Use
  Company Number: None

PATIENT
  Age: 64 Year
  Sex: Female
  Weight: 68.2 kg

DRUGS (4)
  1. ABILIFY [Suspect]
     Indication: DEPRESSION
     Dosage: 1 MG (HALF TAB) ONCE A DAY ORAL
     Route: 048
     Dates: start: 20121109, end: 20130114
  2. ABILIFY [Suspect]
     Route: 048
     Dates: start: 20120512, end: 20121108
  3. BUPROPION [Concomitant]
  4. ADDERAL [Concomitant]

REACTIONS (1)
  - Muscle spasms [None]
